FAERS Safety Report 19309947 (Version 6)
Quarter: 2022Q3

REPORT INFORMATION
  Report Type: Report from Study
  Country: AU (occurrence: AU)
  Receive Date: 20210526
  Receipt Date: 20220810
  Transmission Date: 20221026
  Serious: Yes (Hospitalization, Other)
  Sender: FDA-Public Use
  Company Number: NVSC2021AU115992

PATIENT
  Sex: Female

DRUGS (5)
  1. COSENTYX [Suspect]
     Active Substance: SECUKINUMAB
     Indication: Ankylosing spondylitis
     Dosage: 150 MG, QW
     Route: 058
     Dates: start: 20210323
  2. COSENTYX [Suspect]
     Active Substance: SECUKINUMAB
     Dosage: 150 MG, QMO
     Route: 058
  3. COSENTYX [Suspect]
     Active Substance: SECUKINUMAB
     Dosage: 300 MG, QMO
     Route: 058
  4. COSENTYX [Suspect]
     Active Substance: SECUKINUMAB
     Dosage: 300 MG, QMO
     Route: 058
  5. COSENTYX [Suspect]
     Active Substance: SECUKINUMAB
     Dosage: UNK
     Route: 058
     Dates: start: 20210323

REACTIONS (11)
  - Hepatic enzyme increased [Unknown]
  - Hepatocellular carcinoma [Unknown]
  - Gallbladder hypofunction [Unknown]
  - Fall [Unknown]
  - Contusion [Unknown]
  - Back pain [Unknown]
  - Skin discolouration [Unknown]
  - Viral infection [Unknown]
  - SARS-CoV-2 test positive [Recovered/Resolved]
  - Weight decreased [Unknown]
  - Blood cholesterol increased [Unknown]
